FAERS Safety Report 9085688 (Version 1)
Quarter: 2013Q1

REPORT INFORMATION
  Report Type: Report from Study
  Country: US (occurrence: US)
  Receive Date: 20130131
  Receipt Date: 20130131
  Transmission Date: 20140127
  Serious: No
  Sender: FDA-Public Use
  Company Number: US-ABBOTT-12P-163-1002767-00

PATIENT
  Age: 31 Year
  Sex: Female
  Weight: 63.56 kg

DRUGS (9)
  1. HUMIRA [Suspect]
     Indication: CROHN^S DISEASE
     Dates: start: 20110524, end: 20110905
  2. HUMIRA [Suspect]
     Dates: start: 20111011, end: 20120201
  3. PRENATAL VITAMINS NOS [Concomitant]
     Indication: PRODUCT USED FOR UNKNOWN INDICATION
     Dosage: PILL
     Route: 048
     Dates: start: 20110628, end: 20120220
  4. RED BULL [Concomitant]
     Indication: PRODUCT USED FOR UNKNOWN INDICATION
     Route: 048
     Dates: start: 20110525, end: 20110628
  5. COKE [Concomitant]
     Indication: PRODUCT USED FOR UNKNOWN INDICATION
     Dosage: 1 SERVING
     Route: 048
     Dates: start: 20110525, end: 20120220
  6. MARGARITA [Concomitant]
     Indication: PRODUCT USED FOR UNKNOWN INDICATION
     Dosage: 2 SERVING
     Route: 048
     Dates: start: 20110625, end: 20110625
  7. ORTHO TRI CYCLEN [Concomitant]
     Indication: CONTRACEPTION
     Dosage: PILL
     Route: 048
     Dates: start: 20110525, end: 20110628
  8. LEVBID [Concomitant]
     Indication: DIARRHOEA
     Dosage: PILL
     Route: 048
     Dates: start: 20110525, end: 20110628
  9. IMODIUM [Concomitant]
     Indication: DIARRHOEA
     Dosage: 2 PILLS
     Route: 048
     Dates: start: 20110525, end: 20110628

REACTIONS (16)
  - Pyoderma gangrenosum [Recovered/Resolved]
  - Nasopharyngitis [Recovered/Resolved]
  - Rhinorrhoea [Recovered/Resolved]
  - Multiple allergies [Recovered/Resolved]
  - Pyrexia [Recovered/Resolved]
  - Tinea pedis [Recovered/Resolved]
  - Anal fissure [Recovered/Resolved]
  - Cystitis [Recovered/Resolved]
  - Urinary tract infection [Recovered/Resolved]
  - Nasopharyngitis [Recovered/Resolved]
  - Sinusitis [Recovered/Resolved]
  - Flatulence [Unknown]
  - Anaemia [Unknown]
  - Dyspepsia [Unknown]
  - Cellulitis [Recovered/Resolved]
  - Cystitis [Recovered/Resolved]
